FAERS Safety Report 18081930 (Version 1)
Quarter: 2020Q3

REPORT INFORMATION
  Report Type: Spontaneous
  Country: US (occurrence: US)
  Receive Date: 20200729
  Receipt Date: 20200729
  Transmission Date: 20201103
  Serious: No
  Sender: FDA-Public Use
  Company Number: US-SHIRE-US202024244

PATIENT
  Age: 57 Year
  Sex: Female
  Weight: 54 kg

DRUGS (2)
  1. CUVITRU [Suspect]
     Active Substance: HUMAN IMMUNOGLOBULIN G
     Dosage: 10GM/50ML, EVERY 14 DAYS
     Route: 058
  2. CUVITRU [Suspect]
     Active Substance: HUMAN IMMUNOGLOBULIN G
     Indication: PRIMARY IMMUNODEFICIENCY SYNDROME
     Dosage: 10 MILLIGRAM
     Route: 058
     Dates: start: 20200523

REACTIONS (4)
  - Infusion site erythema [Unknown]
  - Erythema [Unknown]
  - Infusion site swelling [Recovering/Resolving]
  - Infusion site pain [Unknown]
